FAERS Safety Report 9452973 (Version 3)
Quarter: 2013Q4

REPORT INFORMATION
  Report Type: Spontaneous
  Country: US (occurrence: US)
  Receive Date: 20130812
  Receipt Date: 20131010
  Transmission Date: 20140711
  Serious: Yes (Hospitalization, Other)
  Sender: FDA-Public Use
  Company Number: US-ASTELLAS-2013US008301

PATIENT
  Age: 54 Year
  Sex: Female

DRUGS (7)
  1. PROGRAF [Suspect]
     Indication: LIVER TRANSPLANT
     Dosage: 2 MG, BID
     Route: 048
     Dates: start: 20120224
  2. THERAPEUTIC RADIOPHARMACEUTICALS [Concomitant]
     Indication: PRODUCT USED FOR UNKNOWN INDICATION
     Dosage: UNK
     Route: 065
  3. NEXAVAR [Concomitant]
     Indication: PRODUCT USED FOR UNKNOWN INDICATION
     Dosage: 400 MG, UNKNOWN/D
     Route: 065
  4. NORVASC [Concomitant]
     Indication: PRODUCT USED FOR UNKNOWN INDICATION
     Dosage: UNK
     Route: 065
  5. SYNTHROID [Concomitant]
     Indication: PRODUCT USED FOR UNKNOWN INDICATION
     Dosage: UNK
     Route: 065
  6. OXYCODONE [Concomitant]
     Indication: PRODUCT USED FOR UNKNOWN INDICATION
     Dosage: UNK
     Route: 065
  7. PAXIL [Concomitant]
     Indication: PRODUCT USED FOR UNKNOWN INDICATION
     Dosage: UNK
     Route: 065

REACTIONS (7)
  - Metastases to bone [Not Recovered/Not Resolved]
  - Renal artery arteriosclerosis [Not Recovered/Not Resolved]
  - Pulmonary mass [Not Recovered/Not Resolved]
  - Incisional drainage [Unknown]
  - Chest wall abscess [Not Recovered/Not Resolved]
  - Chest pain [Not Recovered/Not Resolved]
  - Impaired healing [Not Recovered/Not Resolved]
